FAERS Safety Report 19774880 (Version 4)
Quarter: 2021Q4

REPORT INFORMATION
  Report Type: Spontaneous
  Country: TR (occurrence: TR)
  Receive Date: 20210901
  Receipt Date: 20211027
  Transmission Date: 20220303
  Serious: Yes (Other)
  Sender: FDA-Public Use
  Company Number: TR-UCBSA-2021040325

PATIENT
  Age: 11 Year
  Sex: Male
  Weight: 75 kg

DRUGS (13)
  1. KEPPRA [Suspect]
     Active Substance: LEVETIRACETAM
     Indication: Petit mal epilepsy
     Dosage: 250 MG PER DAY
     Dates: start: 202010
  2. KEPPRA [Suspect]
     Active Substance: LEVETIRACETAM
     Indication: Off label use
     Dosage: INCREASED TO 250 MG PER WEEK
  3. KEPPRA [Suspect]
     Active Substance: LEVETIRACETAM
     Dosage: TOUCHED TO 1000 MG IN 6 MONTHS
  4. KEPPRA [Suspect]
     Active Substance: LEVETIRACETAM
     Dosage: UNK DOSE, DECREASED FIRST TIME
     Dates: start: 202106
  5. KEPPRA [Suspect]
     Active Substance: LEVETIRACETAM
     Dosage: 500 MILLIGRAM, 2X/DAY (BID)
     Dates: start: 20201003, end: 20210821
  6. KEPPRA [Suspect]
     Active Substance: LEVETIRACETAM
     Dosage: 250 MILLIGRAM, 2X/DAY (BID)
     Dates: start: 20210821
  7. FERRIC OXIDE RED [Suspect]
     Active Substance: FERRIC OXIDE RED
     Indication: Product used for unknown indication
     Dosage: IRON OXIDE IN KEPPRA
  8. FOLIC ACID\IRON POLYMALTOSE [Suspect]
     Active Substance: FOLIC ACID\IRON POLYMALTOSE
     Indication: Mineral supplementation
     Dosage: 100 MILLIGRAM, 2X/DAY (BID)
     Route: 048
     Dates: start: 20210406, end: 20210421
  9. VALPROATE SODIUM [Concomitant]
     Active Substance: VALPROATE SODIUM
     Indication: Seizure
     Dosage: 500 MILLIGRAM, 2X/DAY (BID)
     Route: 048
     Dates: start: 20210209, end: 20210312
  10. VALPROATE SODIUM [Concomitant]
     Active Substance: VALPROATE SODIUM
     Indication: Abdominal discomfort
  11. ETHOSUXIMIDE [Concomitant]
     Active Substance: ETHOSUXIMIDE
     Indication: Seizure
     Dosage: 250 MILLIGRAM, 2X/DAY (BID)
     Route: 048
     Dates: start: 20210806, end: 20210817
  12. PROTINUM [Concomitant]
     Indication: Prophylaxis
     Dosage: 40 MILLIGRAM, ONCE DAILY (QD)
     Route: 048
     Dates: start: 20210829
  13. IBUPROFEN [Concomitant]
     Active Substance: IBUPROFEN
     Indication: Product used for unknown indication

REACTIONS (10)
  - Eosinophilic colitis [Not Recovered/Not Resolved]
  - Haematochezia [Recovered/Resolved]
  - Rectal haemorrhage [Unknown]
  - Seizure [Unknown]
  - Acne [Not Recovered/Not Resolved]
  - Insomnia [Recovered/Resolved]
  - Pain [Unknown]
  - Off label use [Unknown]
  - Drug ineffective [Unknown]
  - Gastritis [Unknown]

NARRATIVE: CASE EVENT DATE: 20201001
